FAERS Safety Report 12879153 (Version 1)
Quarter: 2016Q4

REPORT INFORMATION
  Report Type: Spontaneous
  Country: ES (occurrence: ES)
  Receive Date: 20161024
  Receipt Date: 20161024
  Transmission Date: 20170207
  Serious: Yes (Life-Threatening)
  Sender: FDA-Public Use
  Company Number: ES-ROCHE-1833850

PATIENT
  Age: 61 Year
  Sex: Male

DRUGS (3)
  1. ZYDELIG [Suspect]
     Active Substance: IDELALISIB
     Indication: CHRONIC LYMPHOCYTIC LEUKAEMIA
     Route: 048
     Dates: start: 20160407, end: 201605
  2. MABTHERA [Suspect]
     Active Substance: RITUXIMAB
     Indication: CHRONIC LYMPHOCYTIC LEUKAEMIA
     Route: 042
     Dates: start: 20160407
  3. ZYDELIG [Suspect]
     Active Substance: IDELALISIB
     Route: 048
     Dates: start: 20160609, end: 20160616

REACTIONS (2)
  - Pneumonitis [Recovered/Resolved]
  - Chronic myelomonocytic leukaemia [Not Recovered/Not Resolved]

NARRATIVE: CASE EVENT DATE: 201605
